FAERS Safety Report 17174436 (Version 2)
Quarter: 2020Q1

REPORT INFORMATION
  Report Type: Spontaneous
  Country: US (occurrence: US)
  Receive Date: 20191219
  Receipt Date: 20200121
  Transmission Date: 20200409
  Serious: Yes (Other)
  Sender: FDA-Public Use
  Company Number: US-ALEXION PHARMACEUTICALS INC.-A201918560

PATIENT
  Sex: Male

DRUGS (1)
  1. ULTOMIRIS [Suspect]
     Active Substance: RAVULIZUMAB-CWVZ
     Indication: PAROXYSMAL NOCTURNAL HAEMOGLOBINURIA
     Dosage: 3600 MG, UNK
     Route: 065
     Dates: start: 20191008, end: 20191008

REACTIONS (4)
  - Haemolysis [Unknown]
  - Fatigue [Unknown]
  - Cytopenia [Unknown]
  - Platelet count decreased [Unknown]
